FAERS Safety Report 4821390-1 (Version None)
Quarter: 2005Q4

REPORT INFORMATION
  Report Type: 
  Country: None (occurrence: None)
  Receive Date: 20051107
  Receipt Date: 20051027
  Transmission Date: 20060501
  Serious: Yes (Hospitalization)
  Sender: FDA-Public Use
  Company Number: US-JNJFOC-20051005859

PATIENT
  Sex: Female

DRUGS (14)
  1. INFLIXIMAB [Suspect]
     Indication: RHEUMATOID ARTHRITIS
     Route: 042
  2. ALLEGRA [Concomitant]
  3. ACIDOPHILLUS [Concomitant]
  4. DETROL [Concomitant]
  5. GLUCOPHAGE [Concomitant]
  6. LOTREL [Concomitant]
  7. LOTREL [Concomitant]
  8. PLAVIX [Concomitant]
  9. ZOLOFT [Concomitant]
  10. PROTONIX [Concomitant]
  11. PRAVACHOL [Concomitant]
  12. NASONEX [Concomitant]
  13. BISOPROLOL FUMARATE AND HYDROCHLOROTHIAZIDE [Concomitant]
  14. FOLTX [Concomitant]

REACTIONS (1)
  - HEPATOMEGALY [None]
